FAERS Safety Report 21022365 (Version 3)
Quarter: 2022Q3

REPORT INFORMATION
  Report Type: Report from Study
  Country: CO (occurrence: CO)
  Receive Date: 20220629
  Receipt Date: 20220915
  Transmission Date: 20221026
  Serious: Yes (Other)
  Sender: FDA-Public Use
  Company Number: CO-NOVARTISPH-NVSC2022CO130213

PATIENT
  Sex: Female

DRUGS (6)
  1. KISQALI [Suspect]
     Active Substance: RIBOCICLIB
     Indication: Breast cancer metastatic
     Dosage: 600 MG, QD
     Route: 048
     Dates: start: 202112
  2. KISQALI [Suspect]
     Active Substance: RIBOCICLIB
     Dosage: UNK
     Route: 048
  3. FULVESTRANT [Suspect]
     Active Substance: FULVESTRANT
     Indication: Breast cancer
     Dosage: UNK (EVERY 28 DAYS)
     Route: 065
  4. IBANDRONIC ACID [Concomitant]
     Active Substance: IBANDRONIC ACID
     Indication: Breast cancer
     Dosage: UNK
     Route: 065
  5. TAMOXIFEN [Concomitant]
     Active Substance: TAMOXIFEN
     Indication: Product used for unknown indication
     Dosage: 20 MG, QD
     Route: 065
     Dates: start: 201804
  6. ONDANSETRON [Concomitant]
     Active Substance: ONDANSETRON
     Indication: Product used for unknown indication
     Dosage: UNK
     Route: 065

REACTIONS (17)
  - Haemorrhage [Unknown]
  - Skin exfoliation [Unknown]
  - Skin discolouration [Unknown]
  - Burning sensation [Unknown]
  - Hypersensitivity [Unknown]
  - Discomfort [Unknown]
  - Memory impairment [Unknown]
  - Malaise [Unknown]
  - Skin irritation [Unknown]
  - Scratch [Unknown]
  - Skin disorder [Unknown]
  - Skin discomfort [Unknown]
  - Haemorrhoids [Unknown]
  - Diarrhoea [Unknown]
  - Dry skin [Unknown]
  - Vomiting [Unknown]
  - Pruritus [Unknown]
